FAERS Safety Report 15009979 (Version 3)
Quarter: 2018Q3

REPORT INFORMATION
  Report Type: Spontaneous
  Country: US (occurrence: US)
  Receive Date: 20180614
  Receipt Date: 20180822
  Transmission Date: 20181010
  Serious: Yes (Disabling, Other)
  Sender: FDA-Public Use
  Company Number: US-PFIZER INC-2018237420

PATIENT
  Age: 84 Year
  Sex: Female
  Weight: 72.57 kg

DRUGS (4)
  1. LYRICA [Suspect]
     Active Substance: PREGABALIN
     Indication: PARAESTHESIA
  2. LYRICA [Suspect]
     Active Substance: PREGABALIN
     Indication: PAIN
     Dosage: 50 MG, THREE TIMES A DAY
     Route: 048
     Dates: start: 201803
  3. LYRICA [Suspect]
     Active Substance: PREGABALIN
     Indication: PARAESTHESIA
     Dosage: 75 MG, THREE TIMES DAILY
     Route: 048
  4. LYRICA [Suspect]
     Active Substance: PREGABALIN
     Indication: NEUROPATHY PERIPHERAL

REACTIONS (15)
  - Product package associated injury [Not Recovered/Not Resolved]
  - Neuropathy peripheral [Not Recovered/Not Resolved]
  - Neck pain [Recovering/Resolving]
  - Pain [Not Recovered/Not Resolved]
  - Condition aggravated [Not Recovered/Not Resolved]
  - Back pain [Recovering/Resolving]
  - Coordination abnormal [Not Recovered/Not Resolved]
  - Musculoskeletal disorder [Unknown]
  - Dysstasia [Not Recovered/Not Resolved]
  - Laboratory test abnormal [Unknown]
  - Nuclear magnetic resonance imaging abnormal [Unknown]
  - Electroencephalogram abnormal [Unknown]
  - Fall [Recovered/Resolved with Sequelae]
  - Spinal column injury [Unknown]
  - Product packaging issue [Not Recovered/Not Resolved]

NARRATIVE: CASE EVENT DATE: 2018
